FAERS Safety Report 12924544 (Version 1)
Quarter: 2016Q4

REPORT INFORMATION
  Report Type: Spontaneous
  Country: GB (occurrence: GB)
  Receive Date: 20161108
  Receipt Date: 20161108
  Transmission Date: 20170207
  Serious: Yes (Death)
  Sender: FDA-Public Use
  Company Number: GB-PFIZER INC-2016479554

PATIENT
  Age: 2 Year
  Sex: Female

DRUGS (4)
  1. VENTAVIS [Suspect]
     Active Substance: ILOPROST
     Dosage: UNK
     Dates: end: 20160922
  2. REMODULIN [Suspect]
     Active Substance: TREPROSTINIL
  3. REVATIO [Suspect]
     Active Substance: SILDENAFIL CITRATE
     Dosage: 20 MG, UNK
  4. TRACLEER [Suspect]
     Active Substance: BOSENTAN
     Dosage: 125 MG, UNK

REACTIONS (2)
  - Death [Fatal]
  - Product use issue [Unknown]
